FAERS Safety Report 10770426 (Version 1)
Quarter: 2015Q1

REPORT INFORMATION
  Report Type: Spontaneous
  Country: US (occurrence: None)
  Receive Date: 20150204
  Receipt Date: 20150204
  Transmission Date: 20150721
  Serious: Yes (Death)
  Sender: FDA-Public Use
  Company Number: 2724310

PATIENT
  Age: 38 Year
  Sex: Female

DRUGS (7)
  1. HEROIN [Suspect]
     Active Substance: DIACETYLMORPHINE
  2. (DOXYLAMINE) [Suspect]
     Active Substance: DOXYLAMINE
  3. (QUININE) [Suspect]
     Active Substance: QUININE
  4. (CODEINE) [Suspect]
     Active Substance: CODEINE
     Route: 051
  5. (DIPHENHYDRAMINE) [Suspect]
     Active Substance: DIPHENHYDRAMINE
     Route: 051
  6. (COCAINE) [Suspect]
     Active Substance: COCAINE
  7. SERTRALINE [Suspect]
     Active Substance: SERTRALINE HYDROCHLORIDE

REACTIONS (2)
  - Drug abuse [None]
  - Poisoning [None]

NARRATIVE: CASE EVENT DATE: 2013
